FAERS Safety Report 11557748 (Version 1)
Quarter: 2015Q3

REPORT INFORMATION
  Report Type: Spontaneous
  Country: US (occurrence: US)
  Receive Date: 20150927
  Receipt Date: 20150927
  Transmission Date: 20151125
  Serious: Yes (Death, Hospitalization)
  Sender: FDA-Public Use
  Company Number: US-JNJFOC-20150913999

PATIENT
  Age: 57 Year
  Sex: Female

DRUGS (5)
  1. ACETAMINOPHEN. [Suspect]
     Active Substance: ACETAMINOPHEN
     Indication: HEADACHE
     Dosage: 1G/WEEK
     Route: 065
  2. TYLENOL PM [Interacting]
     Active Substance: ACETAMINOPHEN\DIPHENHYDRAMINE
     Indication: PRODUCT USED FOR UNKNOWN INDICATION
     Dosage: EACH NIGHT
     Route: 065
  3. LEVOTHYROXINE. [Interacting]
     Active Substance: LEVOTHYROXINE
     Indication: HYPOTHYROIDISM
     Dosage: 50 -100 UG DAILY
     Route: 048
  4. ACETAMINOPHEN. [Suspect]
     Active Substance: ACETAMINOPHEN
     Route: 065
  5. SUNITINIB [Interacting]
     Active Substance: SUNITINIB
     Indication: GASTROINTESTINAL STROMAL TUMOUR
     Dosage: 50 MG/DAY OF 8 CYCLES FOR 4 WEEKS, FOLLOWED BY 2 WEKS TREATMENT
     Route: 048

REACTIONS (5)
  - Drug interaction [Fatal]
  - Hepatic necrosis [None]
  - Hepatotoxicity [None]
  - Hepatic failure [Fatal]
  - Hepatic steatosis [None]
